FAERS Safety Report 17022317 (Version 2)
Quarter: 2020Q1

REPORT INFORMATION
  Report Type: Report from Study
  Country: US (occurrence: US)
  Receive Date: 20191112
  Receipt Date: 20200226
  Transmission Date: 20200409
  Serious: Yes (Hospitalization)
  Sender: FDA-Public Use
  Company Number: US-ACTELION-A-NJ2019-189847

PATIENT
  Age: 49 Year
  Sex: Female
  Weight: 78.01 kg

DRUGS (3)
  1. LETAIRIS [Concomitant]
     Active Substance: AMBRISENTAN
  2. ADEMPAS [Suspect]
     Active Substance: RIOCIGUAT
     Indication: PRODUCT USED FOR UNKNOWN INDICATION
     Dosage: .5 MG
     Route: 065
  3. UPTRAVI [Suspect]
     Active Substance: SELEXIPAG
     Indication: PULMONARY ARTERIAL HYPERTENSION
     Dosage: 800 MCG, BID
     Route: 048

REACTIONS (8)
  - Nasal operation [Unknown]
  - Dizziness [Unknown]
  - Syncope [Unknown]
  - Haemorrhage [Unknown]
  - Condition aggravated [Unknown]
  - Fall [Unknown]
  - Unevaluable event [Unknown]
  - Hypertension [Unknown]

NARRATIVE: CASE EVENT DATE: 20190413
